FAERS Safety Report 7268736-5 (Version None)
Quarter: 2011Q1

REPORT INFORMATION
  Report Type: 
  Country: None (occurrence: None)
  Receive Date: 20110201
  Receipt Date: 20110127
  Transmission Date: 20110831
  Serious: Yes (Other)
  Sender: FDA-Public Use
  Company Number: AR-PFIZER INC-2011022321

PATIENT
  Sex: Female

DRUGS (1)
  1. AMLOC [Suspect]
     Dosage: 1 DF, 1X/DAY

REACTIONS (2)
  - CANDIDIASIS [None]
  - OEDEMA PERIPHERAL [None]
